FAERS Safety Report 22531767 (Version 1)
Quarter: 2023Q2

REPORT INFORMATION
  Report Type: Spontaneous
  Country: US (occurrence: None)
  Receive Date: 20230606
  Receipt Date: 20230606
  Transmission Date: 20230722
  Serious: No
  Sender: FDA-Public Use
  Company Number: None

PATIENT
  Sex: Male

DRUGS (12)
  1. ABIRATERONE [Suspect]
     Active Substance: ABIRATERONE
     Indication: Prostate cancer
     Dosage: 4T QD PO?
     Route: 048
  2. ACETAMINOPHEN [Concomitant]
  3. ALLOPURINOL [Concomitant]
  4. ELIQUIS [Concomitant]
     Active Substance: APIXABAN
  5. ATORVASTATIN [Concomitant]
  6. BUMETANIDE [Concomitant]
     Active Substance: BUMETANIDE
  7. CALTRATE [Concomitant]
     Active Substance: CALCIUM CARBONATE
  8. CARVEDILOL [Concomitant]
  9. REFRESH CLASSIC [Concomitant]
     Active Substance: POLYVINYL ALCOHOL\POVIDONE
  10. FERROUS SULFATE [Concomitant]
     Active Substance: FERROUS SULFATE
  11. LISINOPRIL [Concomitant]
  12. MIRALAX [Concomitant]
     Active Substance: POLYETHYLENE GLYCOL 3350

REACTIONS (3)
  - Prostatic specific antigen increased [None]
  - Prostate cancer [None]
  - Condition aggravated [None]
